FAERS Safety Report 18912844 (Version 2)
Quarter: 2021Q2

REPORT INFORMATION
  Report Type: Spontaneous
  Country: NL (occurrence: NL)
  Receive Date: 20210219
  Receipt Date: 20210607
  Transmission Date: 20210717
  Serious: Yes (Hospitalization, Other)
  Sender: FDA-Public Use
  Company Number: NL-VELOXIS PHARMACEUTICALS-2021VELNL-000128

PATIENT
  Age: 62 Year
  Sex: Male

DRUGS (12)
  1. ENVARSUS XR [Interacting]
     Active Substance: TACROLIMUS
     Indication: DISEASE RECURRENCE
     Dosage: 3 MILLIGRAM, QD
     Dates: start: 201706
  2. SORAFENIB [Interacting]
     Active Substance: SORAFENIB
     Dosage: 300 MILLIGRAM, QD  (400 MG ONE DAY AND 200 MG THE OTHER)
     Dates: start: 201802, end: 201805
  3. METFORMIN [Concomitant]
     Active Substance: METFORMIN HYDROCHLORIDE
     Indication: PRODUCT USED FOR UNKNOWN INDICATION
     Dosage: UNK
  4. ENVARSUS XR [Suspect]
     Active Substance: TACROLIMUS
     Indication: METASTASES TO LUNG
     Dosage: UNK
     Dates: start: 2015
  5. SORAFENIB [Interacting]
     Active Substance: SORAFENIB
     Indication: DISEASE RECURRENCE
     Dosage: 200 MILLIGRAM, QD IN THE MORNING
     Dates: start: 201712
  6. METOPROLOL. [Concomitant]
     Active Substance: METOPROLOL
     Indication: PRODUCT USED FOR UNKNOWN INDICATION
     Dosage: UNK
  7. LOSARTAN. [Concomitant]
     Active Substance: LOSARTAN
     Indication: PRODUCT USED FOR UNKNOWN INDICATION
     Dosage: UNK
  8. SORAFENIB [Interacting]
     Active Substance: SORAFENIB
     Dosage: 400 MILLIGRAM, QD IN THE EVENING
     Dates: start: 201712
  9. ENVARSUS XR [Interacting]
     Active Substance: TACROLIMUS
     Indication: IMMUNOSUPPRESSION
     Dosage: 4 MILLIGRAM, QD (INCREASED)
     Dates: start: 201708
  10. SORAFENIB [Interacting]
     Active Substance: SORAFENIB
     Indication: METASTASES TO LUNG
     Dosage: 200 MILLIGRAM, Q12H
     Dates: start: 201706
  11. SORAFENIB [Interacting]
     Active Substance: SORAFENIB
     Dosage: 200 MILLIGRAM, Q12H
     Dates: start: 201802
  12. LOPERAMIDE [Concomitant]
     Active Substance: LOPERAMIDE
     Indication: PRODUCT USED FOR UNKNOWN INDICATION
     Dosage: UNK

REACTIONS (5)
  - Hepatotoxicity [Unknown]
  - Drug interaction [Unknown]
  - Hepatocellular carcinoma [Unknown]
  - Off label use [Unknown]
  - Drug level decreased [Unknown]

NARRATIVE: CASE EVENT DATE: 2017
